FAERS Safety Report 13422657 (Version 1)
Quarter: 2017Q2

REPORT INFORMATION
  Report Type: Spontaneous
  Country: CH (occurrence: CH)
  Receive Date: 20170410
  Receipt Date: 20170410
  Transmission Date: 20170830
  Serious: Yes (Other)
  Sender: FDA-Public Use
  Company Number: CH-VIIV HEALTHCARE LIMITED-CH2017047661

PATIENT
  Age: 46 Year
  Sex: Male

DRUGS (6)
  1. TIVICAY [Suspect]
     Active Substance: DOLUTEGRAVIR SODIUM
     Indication: PRODUCT USED FOR UNKNOWN INDICATION
     Dosage: 50 MG, QD
     Route: 065
     Dates: start: 20170319, end: 20170321
  2. ESOMEP MUPS [Concomitant]
     Active Substance: OMEPRAZOLE
     Dosage: 40 MG, QD
     Dates: start: 201703, end: 20170322
  3. BENERVA [Concomitant]
     Active Substance: THIAMINE
     Dosage: 300 MG, QD
     Dates: start: 201703, end: 20170322
  4. TRUVADA [Suspect]
     Active Substance: EMTRICITABINE\TENOFOVIR DISOPROXIL FUMARATE
     Indication: PRODUCT USED FOR UNKNOWN INDICATION
     Dosage: 1 DF, QD
     Route: 065
     Dates: start: 20170319, end: 20170321
  5. BECOZYM [Concomitant]
     Active Substance: VITAMINS
     Dosage: 1 DF, QD
     Dates: start: 201703, end: 20170322
  6. KCL-RETARD [Concomitant]
     Active Substance: POTASSIUM CHLORIDE
     Dosage: 16 MMOL, TID
     Dates: start: 201703, end: 20170323

REACTIONS (6)
  - Rhabdomyolysis [Recovering/Resolving]
  - Myoglobin blood increased [Recovering/Resolving]
  - Pain [Recovering/Resolving]
  - Blood creatine phosphokinase increased [Recovering/Resolving]
  - Chromaturia [Recovering/Resolving]
  - Growing pains [Recovering/Resolving]

NARRATIVE: CASE EVENT DATE: 20170321
